FAERS Safety Report 10035640 (Version 2)
Quarter: 2014Q2

REPORT INFORMATION
  Report Type: Spontaneous
  Country: US (occurrence: US)
  Receive Date: 20140325
  Receipt Date: 20140409
  Transmission Date: 20141212
  Serious: Yes (Other)
  Sender: FDA-Public Use
  Company Number: US-RB-064059-14

PATIENT
  Age: 72 Year
  Sex: Male

DRUGS (2)
  1. DELSYM [Suspect]
     Indication: COUGH
     Dosage: TOOK 1 DOSE (10 ML) ON 07-MAR-2014. PATIENT CONTINUED TAKING THE PRODUCT AS NEEDED.
     Route: 048
     Dates: start: 20140307
  2. INSULIN PUMP [Concomitant]
     Indication: DIABETES MELLITUS

REACTIONS (2)
  - Pneumonia [Recovered/Resolved]
  - Blood glucose increased [Recovered/Resolved]
